FAERS Safety Report 9550673 (Version 2)
Quarter: 2014Q2

REPORT INFORMATION
  Report Type: Spontaneous
  Country: US (occurrence: US)
  Receive Date: 20130924
  Receipt Date: 20140402
  Transmission Date: 20141212
  Serious: No
  Sender: FDA-Public Use
  Company Number: US-SANOFI-AVENTIS-2013SA016322

PATIENT
  Age: 61 Year
  Sex: Female
  Weight: 82 kg

DRUGS (6)
  1. AUBAGIO [Suspect]
     Indication: MULTIPLE SCLEROSIS
     Route: 048
     Dates: start: 201212, end: 20130723
  2. PRAVASTATIN SODIUM [Concomitant]
     Indication: BLOOD CHOLESTEROL
  3. TRIAMTERENE [Concomitant]
     Indication: FLUID RETENTION
  4. MULTIVITAMINS [Concomitant]
  5. ASPIRIN [Concomitant]
     Dosage: STRENGTH: 81 MG
  6. FISH OIL [Concomitant]

REACTIONS (11)
  - Fall [Unknown]
  - Joint injury [Unknown]
  - Pruritus [Recovered/Resolved]
  - Abdominal discomfort [Recovering/Resolving]
  - Muscular weakness [Not Recovered/Not Resolved]
  - Malaise [Unknown]
  - Fatigue [Not Recovered/Not Resolved]
  - Diarrhoea [Recovered/Resolved]
  - Alopecia [Recovered/Resolved]
  - Hair growth abnormal [Recovered/Resolved]
  - Hypoaesthesia [Not Recovered/Not Resolved]
